FAERS Safety Report 5894773-9 (Version None)
Quarter: 2008Q3

REPORT INFORMATION
  Report Type: 
  Country: None (occurrence: None)
  Receive Date: 20080924
  Receipt Date: 20080505
  Transmission Date: 20090109
  Serious: No
  Sender: FDA-Public Use
  Company Number: US-ASTRAZENECA-2008UW09118

PATIENT
  Age: 23 Year
  Sex: Female
  Weight: 77.1 kg

DRUGS (4)
  1. SEROQUEL [Suspect]
     Indication: BIPOLAR DISORDER
     Route: 048
  2. CYMBALTA [Concomitant]
  3. GABAPENTIN [Concomitant]
  4. CLONIDINE [Concomitant]

REACTIONS (2)
  - CONFUSIONAL STATE [None]
  - SLEEP TALKING [None]
